FAERS Safety Report 8168019-5 (Version None)
Quarter: 2012Q1

REPORT INFORMATION
  Report Type: 
  Country: None (occurrence: None)
  Receive Date: 20120227
  Receipt Date: 20120214
  Transmission Date: 20120608
  Serious: Yes (Other)
  Sender: FDA-Public Use
  Company Number: PHEH2011US009197

PATIENT
  Sex: Female
  Weight: 78.005 kg

DRUGS (13)
  1. PHENYTOIN [Concomitant]
  2. LUVOX [Concomitant]
  3. ALPRAZOLAM [Concomitant]
     Dosage: 1 DF, TID
     Route: 048
  4. SYNTHROID [Concomitant]
     Indication: HYPOTHYROIDISM
  5. DILANTIN [Concomitant]
     Dosage: 100 MG, BID
     Route: 048
  6. CLOZARIL [Suspect]
     Dosage: 200 MG
     Route: 048
  7. CLOZARIL [Suspect]
     Dosage: 300 MG, DAILY
  8. DILANTIN [Concomitant]
     Dosage: 100 MG, TID
     Route: 048
  9. METFORMIN HCL [Concomitant]
     Indication: DIABETES MELLITUS
  10. CLOZARIL [Suspect]
     Dosage: 100 MG, 5 PER DAY BEFORE BEDTIME
     Route: 048
  11. CLONAZEPAM [Concomitant]
     Dosage: HALF TO ONE TABLET TWICE A DAY
  12. CYMBALTA [Concomitant]
     Dosage: 60 MG, A DAY
  13. AMBIEN [Concomitant]

REACTIONS (6)
  - DRUG LEVEL DECREASED [None]
  - ANTIPSYCHOTIC DRUG LEVEL BELOW THERAPEUTIC [None]
  - SOMNOLENCE [None]
  - BARRETT'S OESOPHAGUS [None]
  - ANTIPSYCHOTIC DRUG LEVEL INCREASED [None]
  - EOSINOPHIL COUNT INCREASED [None]
